FAERS Safety Report 6774881-0 (Version None)
Quarter: 2010Q2

REPORT INFORMATION
  Report Type: 
  Country: None (occurrence: None)
  Receive Date: 20100617
  Receipt Date: 20100609
  Transmission Date: 20101027
  Serious: Yes (Other)
  Sender: FDA-Public Use
  Company Number: DE-SANOFI-AVENTIS-2010SA025248

PATIENT
  Age: 51 Year
  Sex: Female
  Weight: 73 kg

DRUGS (5)
  1. ELOXATIN [Suspect]
     Route: 041
     Dates: start: 20100212, end: 20100212
  2. FLUOROURACIL [Suspect]
     Route: 041
     Dates: start: 20100212, end: 20100212
  3. GRANISETRON [Suspect]
     Route: 042
  4. DEXAMETHASONE [Concomitant]
     Indication: DRUG USE FOR UNKNOWN INDICATION
     Route: 042
  5. EMEND [Concomitant]
     Indication: DRUG USE FOR UNKNOWN INDICATION
     Route: 048

REACTIONS (2)
  - LIPASE INCREASED [None]
  - TRANSAMINASES INCREASED [None]
